FAERS Safety Report 13642677 (Version 1)
Quarter: 2017Q2

REPORT INFORMATION
  Report Type: Spontaneous
  Country: GB (occurrence: GB)
  Receive Date: 20170612
  Receipt Date: 20170612
  Transmission Date: 20170830
  Serious: Yes (Life-Threatening)
  Sender: FDA-Public Use
  Company Number: GB-B. BRAUN MEDICAL INC.-2021820

PATIENT
  Age: 71 Year
  Sex: Female

DRUGS (1)
  1. LIDOCAINE. [Suspect]
     Active Substance: LIDOCAINE
     Dates: start: 20161219

REACTIONS (1)
  - Palpitations [None]

NARRATIVE: CASE EVENT DATE: 20161219
